FAERS Safety Report 7045233-3 (Version None)
Quarter: 2010Q3

REPORT INFORMATION
  Report Type: 
  Country: None (occurrence: None)
  Receive Date: 20100929
  Receipt Date: 20100709
  Transmission Date: 20110219
  Serious: No
  Sender: FDA-Public Use
  Company Number: US-WYE-H16453110

PATIENT
  Age: 47 Year
  Sex: Male
  Weight: 86.26 kg

DRUGS (3)
  1. PRISTIQ [Suspect]
     Indication: DIZZINESS
     Dosage: 50 MG 1X PER 1 DAY
     Dates: start: 20100101
  2. PRISTIQ [Suspect]
     Indication: SYNCOPE
     Dosage: 50 MG 1X PER 1 DAY
     Dates: start: 20100101
  3. SYNTHROID [Concomitant]

REACTIONS (1)
  - TREMOR [None]
